FAERS Safety Report 12520132 (Version 2)
Quarter: 2016Q3

REPORT INFORMATION
  Report Type: Other
  Country: US (occurrence: US)
  Receive Date: 20160630
  Receipt Date: 20160708
  Transmission Date: 20161109
  Serious: Yes (Hospitalization)
  Sender: FDA-Public Use
  Company Number: US-UNITED THERAPEUTICS-UNT-2016-010186

PATIENT
  Age: 77 Year
  Sex: Female
  Weight: 64.85 kg

DRUGS (3)
  1. REMODULIN [Suspect]
     Active Substance: TREPROSTINIL
     Indication: PULMONARY HYPERTENSION
     Dosage: 0.0655 ?G/KG, CONTINUING
     Route: 058
     Dates: start: 20090430
  2. COUMADIN [Concomitant]
     Active Substance: WARFARIN SODIUM
     Indication: PRODUCT USED FOR UNKNOWN INDICATION
  3. LETAIRIS [Concomitant]
     Active Substance: AMBRISENTAN
     Indication: PRODUCT USED FOR UNKNOWN INDICATION

REACTIONS (7)
  - Contusion [Unknown]
  - Joint injury [Unknown]
  - Transfusion [Unknown]
  - Weight decreased [Unknown]
  - Fall [Unknown]
  - Laceration [Unknown]
  - Balance disorder [Unknown]

NARRATIVE: CASE EVENT DATE: 201606
